FAERS Safety Report 5039342-8 (Version None)
Quarter: 2006Q2

REPORT INFORMATION
  Report Type: 
  Country: None (occurrence: None)
  Receive Date: 20060623
  Receipt Date: 20060612
  Transmission Date: 20061013
  Serious: Yes (Hospitalization)
  Sender: FDA-Public Use
  Company Number: 2006077333

PATIENT

DRUGS (3)
  1. SERTRALINE [Suspect]
     Indication: ILL-DEFINED DISORDER
  2. RIFAMPICIN [Suspect]
     Indication: TUBERCULOSIS
  3. PYRAZINAMIDE [Suspect]
     Indication: TUBERCULOSIS

REACTIONS (1)
  - HEPATOCELLULAR DAMAGE [None]
